FAERS Safety Report 8763759 (Version 1)
Quarter: 2012Q4

REPORT INFORMATION
  Report Type: Spontaneous
  Country: US (occurrence: None)
  Receive Date: 20120831
  Receipt Date: 20120831
  Transmission Date: 20130627
  Serious: Yes (Other)
  Sender: FDA-Public Use
  Company Number: None

PATIENT
  Age: 87 Year
  Sex: Male

DRUGS (1)
  1. LUCENTIS [Suspect]
     Dosage: 4 weeks
     Route: 031
     Dates: start: 20090313, end: 20120821

REACTIONS (1)
  - Endophthalmitis [None]
